FAERS Safety Report 8621825-2 (Version None)
Quarter: 2012Q3

REPORT INFORMATION
  Report Type: 
  Country: None (occurrence: None)
  Receive Date: 20120821
  Receipt Date: 20120821
  Transmission Date: 20120928
  Serious: Yes (Other)
  Sender: FDA-Public Use
  Company Number: None

PATIENT
  Age: 27 Year
  Sex: Male
  Weight: 68.0396 kg

DRUGS (2)
  1. ALEVE [Suspect]
     Indication: HEADACHE
     Dosage: 1 CAPLET 1 PILL EVERY 8-12H PO  1 PILL TAKEN ONLY
     Route: 048
     Dates: start: 20120817, end: 20120817
  2. ALEVE [Suspect]

REACTIONS (6)
  - DYSGEUSIA [None]
  - HYPOAESTHESIA ORAL [None]
  - PARAESTHESIA ORAL [None]
  - PARAESTHESIA OF GENITAL MALE [None]
  - SKIN DISORDER [None]
  - HYPERSENSITIVITY [None]
